FAERS Safety Report 20688185 (Version 1)
Quarter: 2022Q2

REPORT INFORMATION
  Report Type: Spontaneous
  Country: US (occurrence: US)
  Receive Date: 20220408
  Receipt Date: 20220408
  Transmission Date: 20220721
  Serious: No
  Sender: FDA-Public Use
  Company Number: ENDG21-02376

PATIENT
  Sex: Female

DRUGS (2)
  1. HYDROXYUREA [Suspect]
     Active Substance: HYDROXYUREA
     Indication: Essential thrombocythaemia
     Dosage: 2 DF, DAILY
     Route: 065
     Dates: start: 202009
  2. HYDROXYUREA [Suspect]
     Active Substance: HYDROXYUREA
     Dosage: 1 DF, DAILY
     Route: 065

REACTIONS (4)
  - Rhinorrhoea [Not Recovered/Not Resolved]
  - Constipation [Not Recovered/Not Resolved]
  - Dyspnoea [Not Recovered/Not Resolved]
  - Off label use [Not Recovered/Not Resolved]

NARRATIVE: CASE EVENT DATE: 20200901
